FAERS Safety Report 4766916-1 (Version None)
Quarter: 2005Q3

REPORT INFORMATION
  Report Type: 
  Country: None (occurrence: None)
  Receive Date: 20050913
  Receipt Date: 20050607
  Transmission Date: 20060218
  Serious: Yes (Hospitalization)
  Sender: FDA-Public Use
  Company Number: US-BOEHRINGER INGELHEIM PHARMACEUTICALS, INC.-2005-BP-09496BP

PATIENT
  Age: 73 Year
  Sex: Male

DRUGS (8)
  1. SPIRIVA [Suspect]
     Indication: CHRONIC OBSTRUCTIVE PULMONARY DISEASE
     Route: 055
     Dates: start: 20050217, end: 20050521
  2. SPIRIVA [Suspect]
     Route: 055
     Dates: start: 20050524
  3. FORADIL [Concomitant]
  4. ALBUTEROL [Concomitant]
     Dosage: 2 PUFFS Q 2 HRS PRN
     Route: 055
  5. CROMOLYN SODIUM [Concomitant]
     Dosage: 1 SPRAY EACH NOSTRIL TID
     Route: 055
  6. FORMOTEROL [Concomitant]
     Dosage: 1 CAPSULE INHALED BID
     Route: 055
  7. LORATADINE [Concomitant]
  8. TRIAMCINOLONE [Concomitant]
     Route: 055

REACTIONS (2)
  - CHRONIC OBSTRUCTIVE PULMONARY DISEASE [None]
  - PHARMACEUTICAL PRODUCT COMPLAINT [None]
